FAERS Safety Report 9652943 (Version 1)
Quarter: 2013Q4

REPORT INFORMATION
  Report Type: Spontaneous
  Country: US (occurrence: US)
  Receive Date: 20131029
  Receipt Date: 20131029
  Transmission Date: 20140711
  Serious: No
  Sender: FDA-Public Use
  Company Number: US-PFIZER INC-2013307573

PATIENT
  Sex: Female

DRUGS (1)
  1. LYRICA [Suspect]
     Indication: FIBROMYALGIA
     Dosage: UNK
     Dates: start: 2011

REACTIONS (5)
  - Hypersensitivity [Unknown]
  - Lip swelling [Unknown]
  - Local swelling [Unknown]
  - Joint swelling [Unknown]
  - Vision blurred [Unknown]
